FAERS Safety Report 10143589 (Version 3)
Quarter: 2014Q2

REPORT INFORMATION
  Report Type: Report from Study
  Country: US (occurrence: US)
  Receive Date: 20140430
  Receipt Date: 20140623
  Transmission Date: 20141212
  Serious: Yes (Hospitalization)
  Sender: FDA-Public Use
  Company Number: US-SA-2014SA053798

PATIENT
  Age: 63 Year
  Sex: Female

DRUGS (8)
  1. AUBAGIO [Suspect]
     Indication: MULTIPLE SCLEROSIS
     Route: 048
     Dates: start: 20140301, end: 20140415
  2. AMPYRA [Concomitant]
     Indication: MULTIPLE SCLEROSIS
     Dates: start: 2012
  3. BACLOFEN [Concomitant]
     Indication: MUSCLE SPASTICITY
     Dates: start: 1990
  4. CALCIUM [Concomitant]
     Indication: OSTEOPOROSIS
  5. DOCUSATE [Concomitant]
     Dates: start: 1990
  6. AVONEX [Concomitant]
     Dates: start: 1996, end: 201402
  7. GABAPENTIN [Concomitant]
     Indication: NEUROPATHY PERIPHERAL
     Dates: start: 1990
  8. SERTRALINE [Concomitant]
     Indication: DEPRESSION
     Dates: start: 1990

REACTIONS (3)
  - Sepsis [Recovered/Resolved]
  - Urinary tract infection [Unknown]
  - Hepatic enzyme increased [Unknown]
